FAERS Safety Report 24995808 (Version 1)
Quarter: 2025Q1

REPORT INFORMATION
  Report Type: Spontaneous
  Country: IT (occurrence: IT)
  Receive Date: 20250221
  Receipt Date: 20250221
  Transmission Date: 20250408
  Serious: Yes (Other)
  Sender: QUAGEN PHARMACEUTICALS
  Company Number: IT-QUAGEN-2025QUALIT00234

PATIENT
  Age: 28 Year
  Sex: Male

DRUGS (16)
  1. VALPROIC ACID [Suspect]
     Active Substance: VALPROIC ACID
     Indication: Generalised tonic-clonic seizure
     Route: 065
  2. LAMOTRIGINE [Suspect]
     Active Substance: LAMOTRIGINE
     Indication: Generalised tonic-clonic seizure
     Route: 065
  3. LEVETIRACETAM [Concomitant]
     Active Substance: LEVETIRACETAM
     Indication: Generalised tonic-clonic seizure
     Route: 065
  4. CARBAMAZEPINE [Concomitant]
     Active Substance: CARBAMAZEPINE
     Indication: Generalised tonic-clonic seizure
     Route: 065
  5. CLOBAZAM [Concomitant]
     Active Substance: CLOBAZAM
     Indication: Generalised tonic-clonic seizure
     Route: 065
  6. CLOBAZAM [Concomitant]
     Active Substance: CLOBAZAM
     Route: 065
  7. TOPIRAMATE [Concomitant]
     Active Substance: TOPIRAMATE
     Route: 065
  8. TOPIRAMATE [Concomitant]
     Active Substance: TOPIRAMATE
     Route: 065
  9. FELBAMATE [Concomitant]
     Active Substance: FELBAMATE
     Indication: Generalised tonic-clonic seizure
     Route: 065
  10. CLONAZEPAM [Concomitant]
     Active Substance: CLONAZEPAM
     Indication: Generalised tonic-clonic seizure
     Route: 065
  11. RUFINAMIDE [Concomitant]
     Active Substance: RUFINAMIDE
     Indication: Generalised tonic-clonic seizure
     Route: 065
  12. ACETAZOLAMIDE [Concomitant]
     Active Substance: ACETAZOLAMIDE
     Indication: Generalised tonic-clonic seizure
     Route: 065
  13. ETHOSUXIMIDE [Concomitant]
     Active Substance: ETHOSUXIMIDE
     Indication: Generalised tonic-clonic seizure
     Route: 065
  14. ZONISAMIDE [Concomitant]
     Active Substance: ZONISAMIDE
     Indication: Generalised tonic-clonic seizure
     Route: 065
  15. PERAMPANEL [Concomitant]
     Active Substance: PERAMPANEL
     Indication: Generalised tonic-clonic seizure
     Route: 065
  16. CENOBAMATE [Concomitant]
     Active Substance: CENOBAMATE
     Indication: Generalised tonic-clonic seizure
     Route: 065

REACTIONS (4)
  - Somnolence [Recovering/Resolving]
  - Brain fog [Recovering/Resolving]
  - Disorientation [Recovering/Resolving]
  - Drug interaction [Unknown]
